FAERS Safety Report 10654801 (Version 1)
Quarter: 2014Q4

REPORT INFORMATION
  Report Type: Spontaneous
  Country: PE (occurrence: None)
  Receive Date: 20141212
  Receipt Date: 20141212
  Transmission Date: 20150529
  Serious: Yes (Death)
  Sender: FDA-Public Use
  Company Number: PE2014GSK030692

PATIENT
  Age: 75 Year
  Sex: Female

DRUGS (1)
  1. SEROXAT (PAROXETINE HYDROCHLORIDE) TABLET [Suspect]
     Active Substance: PAROXETINE HYDROCHLORIDE
     Indication: DEPRESSION
     Route: 048
     Dates: start: 20101014

REACTIONS (1)
  - Death [None]

NARRATIVE: CASE EVENT DATE: 201306
